FAERS Safety Report 23226404 (Version 1)
Quarter: 2023Q4

REPORT INFORMATION
  Report Type: Spontaneous
  Country: US (occurrence: US)
  Receive Date: 20231124
  Receipt Date: 20231124
  Transmission Date: 20240109
  Serious: Yes (Death, Other)
  Sender: FDA-Public Use
  Company Number: US-AMGEN-USASP2023206829

PATIENT

DRUGS (4)
  1. DARBEPOETIN ALFA [Suspect]
     Active Substance: DARBEPOETIN ALFA
     Indication: Cardiac failure
     Dosage: UNK
     Route: 065
  2. DARBEPOETIN ALFA [Suspect]
     Active Substance: DARBEPOETIN ALFA
     Indication: Ventricular assist device insertion
  3. EPOETIN ALFA [Suspect]
     Active Substance: ERYTHROPOIETIN
     Indication: Cardiac failure
     Dosage: UNK
     Route: 065
  4. EPOETIN ALFA [Suspect]
     Active Substance: ERYTHROPOIETIN
     Indication: Ventricular assist device insertion

REACTIONS (6)
  - Death [Fatal]
  - Medical device site thrombosis [Unknown]
  - Haemolysis [Unknown]
  - Ischaemic stroke [Unknown]
  - Cerebrovascular accident [Unknown]
  - Off label use [Unknown]
